FAERS Safety Report 12647917 (Version 4)
Quarter: 2016Q4

REPORT INFORMATION
  Report Type: Spontaneous
  Country: US (occurrence: US)
  Receive Date: 20160812
  Receipt Date: 20161128
  Transmission Date: 20170207
  Serious: Yes (Other)
  Sender: FDA-Public Use
  Company Number: US-PFIZER INC-2016382147

PATIENT
  Age: 76 Year
  Sex: Female

DRUGS (13)
  1. BUTALBITAL APAP CAFFEINE [Concomitant]
     Dosage: 1 DF, AS NEEDED (EVERY 6 HOURS)
     Route: 048
  2. CELEBREX [Suspect]
     Active Substance: CELECOXIB
     Dosage: 200 MG, 1X/DAY (DAILY)
     Route: 048
  3. TYLENOL [Concomitant]
     Active Substance: ACETAMINOPHEN
     Dosage: 2 DF, AS NEEDED (EVERY 4 HOURS)
     Route: 048
  4. GABAPENTIN. [Concomitant]
     Active Substance: GABAPENTIN
     Dosage: 1 DF, 1X/DAY (AT NIGHT BEFORE BED)
     Route: 048
  5. FLURAZEPAM HCL [Concomitant]
     Active Substance: FLURAZEPAM HYDROCHLORIDE
     Dosage: 1-2 CAPSULES, 1X/DAY (AT BEDTIME)
     Route: 048
  6. ZOFRAN [Concomitant]
     Active Substance: ONDANSETRON HYDROCHLORIDE
     Dosage: 1 DF, AS NEEDED (EVERY 8 HOURS)
     Route: 048
  7. CITALOPRAM HYDROBROMIDE. [Concomitant]
     Active Substance: CITALOPRAM HYDROBROMIDE
     Dosage: .5 DF, 1X/DAY
     Route: 048
  8. CALCIUM D [Concomitant]
     Active Substance: CALCIUM\VITAMIN D
     Dosage: 1 DF, 1X/DAY (WITH FOOD)
     Route: 048
  9. NORCO [Concomitant]
     Active Substance: ACETAMINOPHEN\HYDROCODONE BITARTRATE
     Indication: PAIN
     Dosage: 1-2 TABLETS, AS NEEDED EVERY 4-6 HOURS
     Route: 048
  10. FIORICET [Concomitant]
     Active Substance: ACETAMINOPHEN\BUTALBITAL\CAFFEINE
     Dosage: 1 DF, AS NEEDED (EVERY 6 HOURS)
     Route: 048
  11. OMEPRAZOLE. [Concomitant]
     Active Substance: OMEPRAZOLE
     Dosage: 1 DF, 2X/DAY
     Route: 048
  12. PRAVASTATIN SODIUM. [Concomitant]
     Active Substance: PRAVASTATIN SODIUM
     Dosage: 2 DF, 1X/DAY
     Route: 048
  13. PREDNISONE. [Concomitant]
     Active Substance: PREDNISONE
     Dosage: 1 DF, 1X/DAY (WITH FOOD OR MILK)
     Route: 048

REACTIONS (3)
  - Femur fracture [Unknown]
  - Spinal osteoarthritis [Unknown]
  - Osteoarthritis [Unknown]
